FAERS Safety Report 21663601 (Version 3)
Quarter: 2022Q4

REPORT INFORMATION
  Report Type: Report from Study
  Country: US (occurrence: US)
  Receive Date: 20221130
  Receipt Date: 20221205
  Transmission Date: 20230113
  Serious: Yes (Hospitalization)
  Sender: FDA-Public Use
  Company Number: US-JAZZ-2022-US-010907

PATIENT
  Sex: Male
  Weight: 102 kg

DRUGS (6)
  1. XYREM [Suspect]
     Active Substance: SODIUM OXYBATE
     Indication: Narcolepsy
     Dosage: 3 GRAM, BID
     Route: 048
     Dates: start: 201108, end: 201207
  2. XYREM [Suspect]
     Active Substance: SODIUM OXYBATE
     Indication: Cataplexy
     Dosage: DOSE ADJUSTMENT
     Dates: start: 201207, end: 201909
  3. XYREM [Suspect]
     Active Substance: SODIUM OXYBATE
     Indication: Somnolence
     Dosage: 4.5 GRAM, BID
     Route: 048
     Dates: start: 201909
  4. XYREM [Suspect]
     Active Substance: SODIUM OXYBATE
     Indication: Insomnia
     Dosage: 7.5 GRAM, BID
  5. VITAMINS [Concomitant]
     Active Substance: VITAMINS
     Indication: Product used for unknown indication
     Dosage: UNK, QD
     Dates: start: 20150824
  6. ADDERALL [Concomitant]
     Active Substance: AMPHETAMINE ASPARTATE\AMPHETAMINE SULFATE\DEXTROAMPHETAMINE SACCHARATE\DEXTROAMPHETAMINE SULFATE
     Indication: Product used for unknown indication
     Dosage: UNK, QD
     Dates: start: 20150824

REACTIONS (3)
  - Hospitalisation [Unknown]
  - Drug tolerance [Unknown]
  - Product administration interrupted [Unknown]

NARRATIVE: CASE EVENT DATE: 20220101
